FAERS Safety Report 15561122 (Version 7)
Quarter: 2020Q3

REPORT INFORMATION
  Report Type: Spontaneous
  Country: US (occurrence: US)
  Receive Date: 20181029
  Receipt Date: 20200730
  Transmission Date: 20201102
  Serious: No
  Sender: FDA-Public Use
  Company Number: US-PFIZER INC-2016542446

PATIENT
  Age: 45 Year
  Sex: Female

DRUGS (12)
  1. FLEXERIL [Concomitant]
     Active Substance: CYCLOBENZAPRINE HYDROCHLORIDE
     Dosage: 5 MG, AS NEEDED (3 TIMES A DAY)
     Route: 048
  2. LYRICA [Suspect]
     Active Substance: PREGABALIN
     Indication: PAIN IN EXTREMITY
     Dosage: 50 MG, 3X/DAY
     Route: 048
     Dates: start: 20161111
  3. LYRICA [Suspect]
     Active Substance: PREGABALIN
     Indication: POLYNEUROPATHY
     Dosage: 75 MG, 3X/DAY
     Route: 048
     Dates: start: 20180627
  4. CALCIUM +D [Concomitant]
     Active Substance: CALCIUM\VITAMIN D
     Dosage: 1 DF, 1X/DAY
     Route: 048
  5. LYRICA [Suspect]
     Active Substance: PREGABALIN
     Indication: BACK PAIN
     Dosage: 75 MG, 3X/DAY
     Route: 048
     Dates: start: 20190109
  6. MOBIC [Concomitant]
     Active Substance: MELOXICAM
     Dosage: 15 MG, DAILY (WITH BREAKFAST; BEGIN THIS MEDICATION ONCE THE MEDROL DOSE PACK COMPLETED)
     Route: 048
  7. ATIVAN [Concomitant]
     Active Substance: LORAZEPAM
     Indication: ANXIETY
     Dosage: 0.5 MG, AS NEEDED (ONCE A DAY)
     Route: 048
  8. PAMELOR [Concomitant]
     Active Substance: NORTRIPTYLINE HYDROCHLORIDE
     Dosage: 100 MG, 1X/DAY (AT BEDTIME)
     Route: 048
  9. LYRICA [Suspect]
     Active Substance: PREGABALIN
     Indication: PAIN
     Dosage: 50 MG, 3X/DAY
     Route: 048
     Dates: start: 20170621
  10. FLEXERIL [Concomitant]
     Active Substance: CYCLOBENZAPRINE HYDROCHLORIDE
     Indication: MUSCLE SPASMS
     Dosage: 10 MG, AS NEEDED (3 TIMES A DAY)
     Route: 048
  11. LYRICA [Suspect]
     Active Substance: PREGABALIN
     Indication: SCIATICA
  12. ZOLOFT [Concomitant]
     Active Substance: SERTRALINE HYDROCHLORIDE
     Dosage: 250 MG, 1X/DAY
     Route: 048

REACTIONS (1)
  - Withdrawal syndrome [Unknown]
